FAERS Safety Report 8474846-7 (Version None)
Quarter: 2012Q2

REPORT INFORMATION
  Report Type: 
  Country: None (occurrence: None)
  Receive Date: 20120628
  Receipt Date: 20120620
  Transmission Date: 20120825
  Serious: Yes (Life-Threatening, Hospitalization, Disabling)
  Sender: FDA-Public Use
  Company Number: PL-BRISTOL-MYERS SQUIBB COMPANY-16702219

PATIENT
  Age: 52 Year
  Sex: Male

DRUGS (5)
  1. ALLOPURINOL [Concomitant]
     Dosage: TABS
     Dates: start: 20120101
  2. KALIPOZ [Concomitant]
     Dosage: TABS
     Dates: start: 20120101
  3. SPRYCEL [Suspect]
     Indication: CHRONIC MYELOID LEUKAEMIA
     Route: 048
  4. POLPRAZOL [Concomitant]
     Dosage: TABS
     Dates: start: 20120101
  5. ENOXAPARIN SODIUM [Concomitant]
     Route: 058
     Dates: start: 20120101

REACTIONS (2)
  - PULMONARY HYPERTENSION [None]
  - RESPIRATORY FAILURE [None]
